FAERS Safety Report 24200659 (Version 1)
Quarter: 2024Q3

REPORT INFORMATION
  Report Type: Spontaneous
  Country: US (occurrence: US)
  Receive Date: 20240812
  Receipt Date: 20240812
  Transmission Date: 20241016
  Serious: No
  Sender: ANI
  Company Number: US-ANIPHARMA-2024-US-040696

PATIENT
  Sex: Male

DRUGS (10)
  1. CORTICOTROPIN [Suspect]
     Active Substance: CORTICOTROPIN
     Indication: Rheumatoid arthritis
     Dosage: NJECT 80 UNITS (1 ML) SUBCUTANEOUSLY 3 TIMES WEEKLY ON MONDAY, WEDNESDAY, AND FRIDAY DURING ACTIVE F
     Route: 058
  2. OMEPRAZOLE [Concomitant]
     Active Substance: OMEPRAZOLE
  3. ACETAMINOPHEN\HYDROCODONE [Concomitant]
     Active Substance: ACETAMINOPHEN\HYDROCODONE
  4. NARCAN [Concomitant]
     Active Substance: NALOXONE HYDROCHLORIDE
  5. RINVOQ [Concomitant]
     Active Substance: UPADACITINIB
  6. SILDENAFIL CITRATE [Concomitant]
     Active Substance: SILDENAFIL CITRATE
  7. VOLTAREN [Concomitant]
     Active Substance: DICLOFENAC SODIUM
  8. ECONAZOLE NITRATE [Concomitant]
     Active Substance: ECONAZOLE NITRATE
  9. ALLEGRA D-12 HOUR [Concomitant]
     Active Substance: FEXOFENADINE HYDROCHLORIDE\PSEUDOEPHEDRINE HYDROCHLORIDE
  10. FLONASE [Concomitant]
     Active Substance: FLUTICASONE PROPIONATE

REACTIONS (2)
  - Product dose omission issue [Unknown]
  - Back pain [Recovered/Resolved]
